FAERS Safety Report 10570594 (Version 2)
Quarter: 2014Q4

REPORT INFORMATION
  Report Type: Spontaneous
  Country: ES (occurrence: ES)
  Receive Date: 20141107
  Receipt Date: 20141216
  Transmission Date: 20150529
  Serious: Yes (Death, Other)
  Sender: FDA-Public Use
  Company Number: ES-CELGENE-ESP-2014110014

PATIENT

DRUGS (6)
  1. THALIDOMIDE [Suspect]
     Active Substance: THALIDOMIDE
     Indication: PLASMA CELL MYELOMA
     Route: 048
  2. ELOTUZUMAB [Suspect]
     Active Substance: ELOTUZUMAB
     Route: 041
  3. CYCLOPHOSPHAMIDE. [Suspect]
     Active Substance: CYCLOPHOSPHAMIDE
     Indication: PLASMA CELL MYELOMA
     Route: 048
  4. DEXAMETHASONE. [Suspect]
     Active Substance: DEXAMETHASONE
     Indication: PLASMA CELL MYELOMA
     Route: 048
  5. ELOTUZUMAB [Suspect]
     Active Substance: ELOTUZUMAB
     Indication: PLASMA CELL MYELOMA
     Route: 041
  6. THALIDOMIDE [Suspect]
     Active Substance: THALIDOMIDE
     Route: 048

REACTIONS (14)
  - Death [Fatal]
  - Back pain [Unknown]
  - Asthenia [Unknown]
  - Neutropenia [Unknown]
  - Thrombocytopenia [Unknown]
  - Infusion related reaction [Unknown]
  - Pyrexia [Unknown]
  - Anaemia [Unknown]
  - Toxicity to various agents [Unknown]
  - Oedema peripheral [Unknown]
  - Neuropathy peripheral [Unknown]
  - Respiratory tract infection [Unknown]
  - Constipation [Unknown]
  - Disease progression [Unknown]
